FAERS Safety Report 15298557 (Version 1)
Quarter: 2018Q3

REPORT INFORMATION
  Report Type: Spontaneous
  Country: JP (occurrence: JP)
  Receive Date: 20180820
  Receipt Date: 20180820
  Transmission Date: 20181010
  Serious: Yes (Death)
  Sender: FDA-Public Use
  Company Number: JP-PURDUE PHARMA-GBR-2016-0033512

PATIENT
  Sex: Female

DRUGS (1)
  1. OXYCODONE HYDROCHLORIDE. [Suspect]
     Active Substance: OXYCODONE HYDROCHLORIDE
     Indication: CANCER PAIN
     Dosage: 200 MG, DAILY
     Route: 042
     Dates: start: 2015

REACTIONS (1)
  - Malignant neoplasm progression [Fatal]
